FAERS Safety Report 6524687-2 (Version None)
Quarter: 2009Q4

REPORT INFORMATION
  Report Type: 
  Country: None (occurrence: None)
  Receive Date: 20091231
  Receipt Date: 20091231
  Transmission Date: 20100525
  Serious: Yes (Disabling)
  Sender: FDA-Public Use
  Company Number: None

PATIENT
  Age: 41 Year
  Sex: Female
  Weight: 81.8 kg

DRUGS (1)
  1. LEVAQUIN [Suspect]
     Indication: MASTOIDITIS
     Dosage: LEVAQUIN 500MG ONCE A DAY BY MOUTH
     Route: 048
     Dates: start: 20091214, end: 20091225

REACTIONS (2)
  - ARTHRALGIA [None]
  - TENDONITIS [None]
